FAERS Safety Report 5585785-3 (Version None)
Quarter: 2008Q1

REPORT INFORMATION
  Report Type: 
  Country: None (occurrence: None)
  Receive Date: 20080109
  Receipt Date: 20071214
  Transmission Date: 20080703
  Serious: No
  Sender: FDA-Public Use
  Company Number: US-BAYER-200713022BCC

PATIENT
  Age: 60 Year
  Sex: Female
  Weight: 77 kg

DRUGS (5)
  1. ALEVE [Suspect]
     Dosage: TOTAL DAILY DOSE: 880 MG  UNIT DOSE: 220 MG
     Route: 048
     Dates: start: 20070912, end: 20070914
  2. ALBUTEROL [Concomitant]
  3. FLEXERIL [Concomitant]
  4. HYDROCHLOROTHIAZIDE [Concomitant]
  5. ELAVIL [Concomitant]

REACTIONS (1)
  - BACK PAIN [None]
